APPROVED DRUG PRODUCT: KORSUVA
Active Ingredient: DIFELIKEFALIN ACETATE
Strength: EQ 0.065MG BASE/1.3ML (EQ 0.05MG BASE/ML)
Dosage Form/Route: SOLUTION;INTRAVENOUS
Application: N214916 | Product #001
Applicant: VIFOR (INTERNATIONAL) INC
Approved: Aug 23, 2021 | RLD: Yes | RS: Yes | Type: RX

PATENTS:
Patent 10793596 | Expires: Nov 12, 2027
Patent 10138270 | Expires: Nov 12, 2027
Patent 10017536 | Expires: Nov 12, 2027
Patent 9359399 | Expires: Nov 12, 2027
Patent 9334305 | Expires: Nov 12, 2027
Patent 8536131 | Expires: Nov 12, 2027
Patent 8486894 | Expires: Nov 12, 2027
Patent 8236766 | Expires: Nov 12, 2027
Patent 8217007 | Expires: Nov 12, 2027
Patent 7727963 | Expires: Nov 12, 2027
Patent 7713937 | Expires: Nov 12, 2027
Patent 7402564 | Expires: Nov 12, 2027

EXCLUSIVITY:
Code: NCE | Date: Aug 23, 2026